FAERS Safety Report 25743361 (Version 2)
Quarter: 2025Q3

REPORT INFORMATION
  Report Type: Spontaneous
  Country: US (occurrence: US)
  Receive Date: 20250830
  Receipt Date: 20250905
  Transmission Date: 20251021
  Serious: Yes (Life-Threatening, Hospitalization)
  Sender: DR REDDYS
  Company Number: US-DRL-USA-USA/2025/08/012890

PATIENT
  Age: 29 Year
  Sex: Male

DRUGS (2)
  1. IBUPROFEN [Suspect]
     Active Substance: IBUPROFEN
     Indication: Abdominal pain upper
  2. IBUPROFEN [Suspect]
     Active Substance: IBUPROFEN
     Indication: Abdominal pain

REACTIONS (5)
  - Cholecystitis acute [Recovering/Resolving]
  - Gastric ulcer perforation [Recovering/Resolving]
  - Condition aggravated [Recovering/Resolving]
  - Self-medication [Unknown]
  - Pain [Unknown]
